FAERS Safety Report 8619018-8 (Version None)
Quarter: 2012Q3

REPORT INFORMATION
  Report Type: 
  Country: None (occurrence: None)
  Receive Date: 20120824
  Receipt Date: 20120818
  Transmission Date: 20120928
  Serious: Yes (Hospitalization, Other)
  Sender: FDA-Public Use
  Company Number: PHHY2012HU071993

PATIENT
  Age: 53 Year
  Sex: Female

DRUGS (6)
  1. LEVOTHYROXINE SODIUM [Concomitant]
     Dosage: 150 UG, UNK
  2. ATORVASTATIN [Concomitant]
     Dosage: 40 MG, UNK
  3. QUETIAPINE [Suspect]
     Dosage: 200 MG, QD
  4. CARBAMAZEPINE [Suspect]
     Dosage: 200 MG, QD
  5. LITHIUM CARBONATE [Suspect]
     Dosage: 250 MG, BID
  6. CINOLAZEPAM [Concomitant]
     Dosage: 40 MG, UNK

REACTIONS (8)
  - ATRIOVENTRICULAR BLOCK SECOND DEGREE [None]
  - NODAL RHYTHM [None]
  - LEFT ATRIAL DILATATION [None]
  - TREMOR [None]
  - FATIGUE [None]
  - HEART VALVE INCOMPETENCE [None]
  - CARDIAC HYPERTROPHY [None]
  - SINUS BRADYCARDIA [None]
